FAERS Safety Report 5735898-8 (Version None)
Quarter: 2008Q2

REPORT INFORMATION
  Report Type: 
  Country: None (occurrence: None)
  Receive Date: 20080509
  Receipt Date: 20080501
  Transmission Date: 20081010
  Serious: Yes (Hospitalization)
  Sender: FDA-Public Use
  Company Number: 2008SP008204

PATIENT
  Age: 67 Year
  Sex: Male
  Weight: 77.7 kg

DRUGS (3)
  1. TEMODAR [Suspect]
     Indication: GLIOBLASTOMA MULTIFORME
     Dosage: PO
     Route: 048
     Dates: start: 20080226, end: 20080408
  2. COUMADIN [Concomitant]
  3. LOVENOX [Concomitant]

REACTIONS (2)
  - ARTHRALGIA [None]
  - DEEP VEIN THROMBOSIS [None]
